FAERS Safety Report 9952328 (Version 1)
Quarter: 2014Q1

REPORT INFORMATION
  Report Type: Report from Study
  Country: US (occurrence: US)
  Receive Date: 20140304
  Receipt Date: 20140304
  Transmission Date: 20141002
  Serious: No
  Sender: FDA-Public Use
  Company Number: US-ABBVIE-13P-163-1076157-00

PATIENT
  Age: 65 Year
  Sex: Female

DRUGS (7)
  1. HUMIRA [Suspect]
     Indication: CROHN^S DISEASE
     Dates: start: 20130314, end: 20130314
  2. HUMIRA [Suspect]
     Dates: start: 20130328, end: 20130328
  3. ASACOL [Concomitant]
     Indication: PRODUCT USED FOR UNKNOWN INDICATION
  4. DAYPRO [Concomitant]
     Indication: ARTHRITIS
     Dosage: 1-2 TABLETS DAILY
  5. GLIMEPIRIDE [Concomitant]
     Indication: DIABETES MELLITUS
     Dosage: 4 MG DAILY
  6. BENAZEPRIL [Concomitant]
     Indication: HYPERTENSION
     Dosage: 10 MG DAILY
  7. PREDNISONE [Concomitant]
     Indication: PRODUCT USED FOR UNKNOWN INDICATION
     Dosage: 2.5 MG DAILY

REACTIONS (1)
  - Injection site bruising [Recovered/Resolved]
